FAERS Safety Report 24638499 (Version 1)
Quarter: 2024Q4

REPORT INFORMATION
  Report Type: Spontaneous
  Country: CA (occurrence: CA)
  Receive Date: 20241119
  Receipt Date: 20241119
  Transmission Date: 20250115
  Serious: Yes (Hospitalization)
  Sender: NOVARTIS
  Company Number: CA-002147023-NVSC2024CA222356

PATIENT
  Age: 49 Year
  Sex: Female

DRUGS (3)
  1. LAMISIL [Suspect]
     Active Substance: TERBINAFINE HYDROCHLORIDE
     Indication: Product used for unknown indication
     Dosage: 1 %, BID (UPTO 14 DAYS)
     Route: 065
     Dates: start: 20240920, end: 20241015
  2. TERBINAFINE HYDROCHLORIDE [Suspect]
     Active Substance: TERBINAFINE HYDROCHLORIDE
     Indication: Product used for unknown indication
     Dosage: 250 MG, QD (FOR 4 WEEKS)
     Route: 065
  3. METHIMAZOLE [Concomitant]
     Active Substance: METHIMAZOLE
     Indication: Graves^ disease
     Dosage: 5 MG, QD
     Route: 065

REACTIONS (11)
  - Peripheral swelling [Unknown]
  - Scab [Unknown]
  - Tinea faciei [Unknown]
  - Lip blister [Unknown]
  - Hypersensitivity [Unknown]
  - Skin burning sensation [Unknown]
  - Pain [Unknown]
  - Pruritus [Unknown]
  - Rash [Unknown]
  - Skin exfoliation [Unknown]
  - Erythema [Unknown]
